FAERS Safety Report 6228080-1 (Version None)
Quarter: 2009Q2

REPORT INFORMATION
  Report Type: 
  Country: None (occurrence: None)
  Receive Date: 20090612
  Receipt Date: 20090604
  Transmission Date: 20091009
  Serious: Yes (Death)
  Sender: FDA-Public Use
  Company Number: NO-WATSON-2009-04137

PATIENT
  Age: 77 Year
  Sex: Male

DRUGS (1)
  1. PREDNISOLONE (WATSON LABORATORIES) [Suspect]
     Indication: PYODERMA GANGRENOSUM
     Dosage: 40 MG, DAILY

REACTIONS (1)
  - AORTIC ANEURYSM RUPTURE [None]
